FAERS Safety Report 6087712-1 (Version None)
Quarter: 2009Q1

REPORT INFORMATION
  Report Type: 
  Country: None (occurrence: None)
  Receive Date: 20090223
  Receipt Date: 20090209
  Transmission Date: 20090719
  Serious: Yes (Other)
  Sender: FDA-Public Use
  Company Number: US-ROCHE-613713

PATIENT
  Age: 61 Year
  Sex: Male

DRUGS (5)
  1. INTERFERON ALFA-2A [Suspect]
     Indication: HEPATITIS C
     Route: 065
  2. LORTAB [Concomitant]
  3. FOSINOPRIL [Concomitant]
  4. PROPRANOLOL [Concomitant]
  5. GLIPIZIDE [Concomitant]

REACTIONS (4)
  - AGGRESSION [None]
  - ANGER [None]
  - HOMICIDAL IDEATION [None]
  - IRRITABILITY [None]
